FAERS Safety Report 8434126-2 (Version None)
Quarter: 2012Q2

REPORT INFORMATION
  Report Type: 
  Country: None (occurrence: None)
  Receive Date: 20120613
  Receipt Date: 20120607
  Transmission Date: 20120825
  Serious: Yes (Other)
  Sender: FDA-Public Use
  Company Number: CA-ABBOTT-12P-028-0943667-00

PATIENT
  Sex: Female
  Weight: 64 kg

DRUGS (3)
  1. HUMIRA [Suspect]
     Dates: end: 20110101
  2. HUMIRA [Suspect]
     Indication: CROHN'S DISEASE
     Route: 058
     Dates: start: 20090109
  3. HUMIRA [Suspect]
     Dates: end: 20101201

REACTIONS (4)
  - DEVICE LEAKAGE [None]
  - ECZEMA [None]
  - COLECTOMY [None]
  - DRUG INEFFECTIVE [None]
